FAERS Safety Report 16550818 (Version 1)
Quarter: 2019Q3

REPORT INFORMATION
  Report Type: Spontaneous
  Country: GB (occurrence: GB)
  Receive Date: 20190710
  Receipt Date: 20190710
  Transmission Date: 20191004
  Serious: Yes (Other)
  Sender: FDA-Public Use
  Company Number: GB-ACCORD-137529

PATIENT
  Age: 29 Year
  Sex: Female
  Weight: 62 kg

DRUGS (5)
  1. TEVA SUMATRIPTAN [Concomitant]
     Active Substance: SUMATRIPTAN
  2. SALBUTAMOL [Concomitant]
     Active Substance: ALBUTEROL
  3. RELVAR ELLIPTA [Concomitant]
     Active Substance: FLUTICASONE FUROATE\VILANTEROL TRIFENATATE
  4. LEVOTHYROXINE. [Concomitant]
     Active Substance: LEVOTHYROXINE
  5. SERTRALINE [Suspect]
     Active Substance: SERTRALINE HYDROCHLORIDE
     Indication: DEPRESSION
     Route: 048
     Dates: start: 20190611

REACTIONS (5)
  - Joint stiffness [Not Recovered/Not Resolved]
  - Pain in jaw [Not Recovered/Not Resolved]
  - Dry mouth [Not Recovered/Not Resolved]
  - Mydriasis [Not Recovered/Not Resolved]
  - Bruxism [Not Recovered/Not Resolved]

NARRATIVE: CASE EVENT DATE: 20190611
